FAERS Safety Report 6137462-8 (Version None)
Quarter: 2009Q1

REPORT INFORMATION
  Report Type: 
  Country: None (occurrence: None)
  Receive Date: 20090326
  Receipt Date: 20090318
  Transmission Date: 20090719
  Serious: Yes (Other)
  Sender: FDA-Public Use
  Company Number: USA-09-0001-PRCH

PATIENT
  Age: 52 Year
  Sex: Female

DRUGS (2)
  1. PROCHIEVE 4% (PROGESTERONE GEL) [Suspect]
     Indication: HORMONE REPLACEMENT THERAPY
     Dosage: 4%, 1 IN 2 DAYS, VAGINAL
     Route: 067
     Dates: start: 20090218, end: 20090220
  2. VIVELLE-DOT [Concomitant]

REACTIONS (2)
  - PARAESTHESIA [None]
  - SENSATION OF PRESSURE [None]
